FAERS Safety Report 17763357 (Version 1)
Quarter: 2020Q2

REPORT INFORMATION
  Report Type: Spontaneous
  Country: FR (occurrence: FR)
  Receive Date: 20200509
  Receipt Date: 20200509
  Transmission Date: 20200714
  Serious: Yes (Hospitalization)
  Sender: FDA-Public Use
  Company Number: FR-TEVA-2020-FR-1232305

PATIENT
  Age: 85 Year
  Sex: Male

DRUGS (4)
  1. BROMAZEPAM [Interacting]
     Active Substance: BROMAZEPAM
     Indication: SLEEP DISORDER
     Dosage: 9 MG
     Route: 048
  2. LAROXYL 25 MG, COMPRIME PELLICULE [Interacting]
     Active Substance: AMITRIPTYLINE
     Indication: PRODUCT USED FOR UNKNOWN INDICATION
     Dosage: 1 DOSAGE FORMS
     Route: 048
     Dates: end: 202003
  3. TRAMADOL. [Suspect]
     Active Substance: TRAMADOL
     Indication: PRODUCT USED FOR UNKNOWN INDICATION
     Dosage: UNKNOWN
     Route: 048
     Dates: end: 202003
  4. SULPIRIDE [Interacting]
     Active Substance: SULPIRIDE
     Indication: PRODUCT USED FOR UNKNOWN INDICATION
     Dosage: 50 MG
     Route: 048

REACTIONS (7)
  - Asthenia [Recovering/Resolving]
  - Subdural haematoma [Recovering/Resolving]
  - Product prescribing error [Recovered/Resolved]
  - Drug interaction [Unknown]
  - Cognitive disorder [Recovering/Resolving]
  - Gait disturbance [Recovering/Resolving]
  - Fall [Recovering/Resolving]

NARRATIVE: CASE EVENT DATE: 201911
